FAERS Safety Report 24883017 (Version 1)
Quarter: 2025Q1

REPORT INFORMATION
  Report Type: Report from Study
  Country: ES (occurrence: ES)
  Receive Date: 20250124
  Receipt Date: 20250124
  Transmission Date: 20250408
  Serious: Yes (Life-Threatening)
  Sender: SANDOZ
  Company Number: ES-002147023-NVSC2022ES148232

PATIENT
  Age: 71 Year
  Sex: Male
  Weight: 80 kg

DRUGS (12)
  1. FLUOROURACIL [Suspect]
     Active Substance: FLUOROURACIL
     Dosage: 760 MG, Q2W
     Route: 042
     Dates: start: 20220127, end: 20220310
  2. FLUOROURACIL [Suspect]
     Active Substance: FLUOROURACIL
     Indication: Colorectal cancer metastatic
     Route: 042
     Dates: start: 20220127
  3. BEVACIZUMAB [Suspect]
     Active Substance: BEVACIZUMAB
     Indication: Colorectal cancer metastatic
     Dosage: 405 MG, Q2W
     Route: 042
     Dates: start: 20220127, end: 20220310
  4. IRINOTECAN [Suspect]
     Active Substance: IRINOTECAN
     Indication: Colorectal cancer metastatic
     Dosage: 342 MG, Q2W
     Route: 042
     Dates: start: 20220127, end: 20220310
  5. LEUCOVORIN [Suspect]
     Active Substance: LEUCOVORIN\LEUCOVORIN CALCIUM
     Indication: Colorectal cancer metastatic
     Dosage: 760 MG, Q2W
     Route: 042
     Dates: start: 20220127, end: 20220310
  6. FLUOROURACIL\IRINOTECAN\LEUCOVORIN [Concomitant]
     Active Substance: FLUOROURACIL\IRINOTECAN\LEUCOVORIN
     Indication: Product used for unknown indication
     Route: 065
     Dates: start: 20220510
  7. HYDROCHLOROTHIAZIDE [Concomitant]
     Active Substance: HYDROCHLOROTHIAZIDE
     Indication: General physical condition
     Route: 065
     Dates: start: 20220120, end: 20220712
  8. MAGNESIA CINFA [Concomitant]
     Indication: Constipation
     Route: 065
     Dates: start: 20220209, end: 20220506
  9. MAGNESIA CINFA [Concomitant]
     Route: 065
     Dates: start: 20220209, end: 20220506
  10. ONDANSETRON [Concomitant]
     Active Substance: ONDANSETRON
     Indication: General physical condition
     Route: 065
     Dates: start: 20220126
  11. RAMIPRIL [Concomitant]
     Active Substance: RAMIPRIL
     Indication: Hypertension
     Route: 065
     Dates: start: 20191112, end: 20220712
  12. SIMVASTATIN [Concomitant]
     Active Substance: SIMVASTATIN
     Indication: Dyslipidaemia
     Route: 065
     Dates: start: 20181113

REACTIONS (1)
  - Cardiac ventricular thrombosis [Recovered/Resolved]

NARRATIVE: CASE EVENT DATE: 20220318
